FAERS Safety Report 8213770-1 (Version None)
Quarter: 2012Q1

REPORT INFORMATION
  Report Type: 
  Country: None (occurrence: None)
  Receive Date: 20120316
  Receipt Date: 20120312
  Transmission Date: 20120608
  Serious: Yes (Hospitalization)
  Sender: FDA-Public Use
  Company Number: PHHY2012AR021997

PATIENT
  Sex: Male

DRUGS (2)
  1. DIOVAN [Suspect]
     Indication: HYPERTENSION
     Dosage: 320 MG, ONE TABLET DAILY
  2. EXELON [Suspect]
     Indication: AMNESIA
     Dosage: 9.5 MG, ONE PATCH DAILY
     Route: 062

REACTIONS (1)
  - INFARCTION [None]
